FAERS Safety Report 4675810-6 (Version None)
Quarter: 2005Q2

REPORT INFORMATION
  Report Type: 
  Country: None (occurrence: None)
  Receive Date: 20050527
  Receipt Date: 20050512
  Transmission Date: 20051028
  Serious: Yes (Death, Other)
  Sender: FDA-Public Use
  Company Number: SEWYE666316MAY05

PATIENT
  Sex: Female

DRUGS (18)
  1. ENBREL [Suspect]
     Indication: TEMPORAL ARTERITIS
     Dosage: 50 MG PER WEEK
     Route: 058
     Dates: start: 20040401
  2. FOSAMAX [Concomitant]
  3. INSULIN ASPART [Concomitant]
  4. CLARITIN [Concomitant]
  5. ISOPHANE INSULIN [Concomitant]
  6. EMCONCOR [Concomitant]
  7. COZAAR [Concomitant]
  8. SIMVASTATIN [Concomitant]
  9. LEHYDAN [Concomitant]
  10. ASPIRIN [Concomitant]
  11. LEVAXIN [Concomitant]
  12. IMDUR [Concomitant]
  13. PREDNISOLONE [Concomitant]
     Dosage: 25 MG DAILY
  14. PREDNISOLONE [Concomitant]
     Dosage: 5 MG DAILY
  15. PANTOPRAZOLE SODIUM [Concomitant]
  16. ADRENALINE [Concomitant]
  17. ATROPINE SULFATE [Concomitant]
     Route: 047
  18. TRIBONAT [Concomitant]

REACTIONS (7)
  - ACUTE MYOCARDIAL INFARCTION [None]
  - ACUTE PULMONARY OEDEMA [None]
  - BRADYCARDIA [None]
  - CARDIAC FAILURE [None]
  - PULMONARY OEDEMA [None]
  - SINUS TACHYCARDIA [None]
  - VENTRICULAR FIBRILLATION [None]
